FAERS Safety Report 7801802-1 (Version None)
Quarter: 2011Q4

REPORT INFORMATION
  Report Type: 
  Country: None (occurrence: None)
  Receive Date: 20111007
  Receipt Date: 20110926
  Transmission Date: 20120403
  Serious: Yes (Death, Hospitalization)
  Sender: FDA-Public Use
  Company Number: FR-BRISTOL-MYERS SQUIBB COMPANY-16099350

PATIENT
  Age: 81 Year
  Sex: Female

DRUGS (12)
  1. LIPANOR [Suspect]
     Route: 048
  2. DIGOXIN [Suspect]
     Route: 048
  3. EXELON [Concomitant]
  4. STABLON [Concomitant]
  5. MODOPAR [Concomitant]
  6. LIORESAL [Concomitant]
  7. MEPROBAMATE [Concomitant]
  8. BISOPROLOL FUMARATE [Concomitant]
  9. POTASSIUM CHLORIDE [Concomitant]
  10. COUMADIN [Suspect]
     Indication: ATRIAL FIBRILLATION
     Dosage: COUMADINE 2 MG, 0.5 TABLET ALTERNATING WITH 0.25 TABLET EACH MORNING FOR SEVERAL MONTHS
  11. ESCITALOPRAM OXALATE [Suspect]
     Route: 048
  12. MONO-TILDIEM LP [Concomitant]

REACTIONS (4)
  - CEREBELLAR HAEMATOMA [None]
  - HEMIPLEGIA [None]
  - ALTERED STATE OF CONSCIOUSNESS [None]
  - BLOOD PRESSURE INCREASED [None]
